FAERS Safety Report 6945504-2 (Version None)
Quarter: 2010Q3

REPORT INFORMATION
  Report Type: 
  Country: None (occurrence: None)
  Receive Date: 20100827
  Receipt Date: 20100823
  Transmission Date: 20110219
  Serious: Yes (Hospitalization)
  Sender: FDA-Public Use
  Company Number: AU-BAXTER-2010BH022074

PATIENT
  Age: 43 Year
  Sex: Female

DRUGS (4)
  1. CYCLOPHOSPHAMIDE [Suspect]
     Indication: BREAST CANCER
     Route: 065
     Dates: start: 20100511
  2. DOCETAXEL [Suspect]
     Indication: BREAST CANCER
     Route: 065
     Dates: start: 20100511
  3. TRIPTORELIN [Suspect]
     Indication: HORMONE SUPPRESSION THERAPY
     Route: 030
     Dates: start: 20100511, end: 20100803
  4. TAMOXIFEN GENERIC [Suspect]
     Indication: HORMONE SUPPRESSION THERAPY
     Route: 065
     Dates: start: 20100101

REACTIONS (2)
  - CELLULITIS [None]
  - NEUTROPENIA [None]
